FAERS Safety Report 6704811-9 (Version None)
Quarter: 2010Q2

REPORT INFORMATION
  Report Type: 
  Country: None (occurrence: None)
  Receive Date: 20100430
  Receipt Date: 20100201
  Transmission Date: 20101027
  Serious: No
  Sender: FDA-Public Use
  Company Number: US-ASTRAZENECA-2010SE04398

PATIENT
  Age: 20473 Day
  Sex: Female
  Weight: 56.7 kg

DRUGS (5)
  1. NEXIUM [Suspect]
     Route: 048
     Dates: start: 20100115, end: 20100115
  2. VITAMINS [Concomitant]
  3. B3 [Concomitant]
  4. PYRIDOXINE HCL [Concomitant]
  5. FISH OIL [Concomitant]

REACTIONS (1)
  - EAR PAIN [None]
